FAERS Safety Report 23564362 (Version 1)
Quarter: 2024Q1

REPORT INFORMATION
  Report Type: Spontaneous
  Country: US (occurrence: US)
  Receive Date: 20240226
  Receipt Date: 20240226
  Transmission Date: 20240410
  Serious: Yes (Hospitalization, Other)
  Sender: FDA-Public Use
  Company Number: US-DRL-USA-SPO/USA/24/0003123

PATIENT
  Age: 60 Year
  Sex: Female

DRUGS (4)
  1. LURASIDONE [Suspect]
     Active Substance: LURASIDONE
     Indication: Product used for unknown indication
     Dosage: DOSE DECREASED
  2. LURASIDONE [Suspect]
     Active Substance: LURASIDONE
  3. LAMOTRIGINE [Suspect]
     Active Substance: LAMOTRIGINE
     Indication: Epilepsy
     Route: 048
  4. AMANTADINE [Concomitant]
     Active Substance: AMANTADINE
     Indication: Dyskinesia

REACTIONS (3)
  - Withdrawal syndrome [Recovered/Resolved]
  - Dyskinesia [Recovered/Resolved]
  - Hallucination, visual [Recovered/Resolved]
